FAERS Safety Report 17149219 (Version 4)
Quarter: 2020Q1

REPORT INFORMATION
  Report Type: Other
  Country: PT (occurrence: PT)
  Receive Date: 20191213
  Receipt Date: 20200120
  Transmission Date: 20200409
  Serious: Yes (Other)
  Sender: FDA-Public Use
  Company Number: PT-ASPEN-GLO2019PT013099

PATIENT
  Age: 50 Year
  Sex: Female

DRUGS (23)
  1. RITUXIMAB. [Suspect]
     Active Substance: RITUXIMAB
     Indication: CENTRAL NERVOUS SYSTEM LEUKAEMIA
  2. ABACAVIR. [Concomitant]
     Active Substance: ABACAVIR
     Indication: ACQUIRED IMMUNODEFICIENCY SYNDROME
  3. VINCRISTINE [Suspect]
     Active Substance: VINCRISTINE
     Indication: CENTRAL NERVOUS SYSTEM LEUKAEMIA
     Dosage: 3 CYCLES, R-HYPER-CVAD REGIMEN
     Route: 037
     Dates: start: 201806
  4. DOLUTEGRAVIR [Concomitant]
     Active Substance: DOLUTEGRAVIR
     Indication: HIV INFECTION
     Dosage: UNK
     Route: 065
  5. DEXAMETHASONE. [Suspect]
     Active Substance: DEXAMETHASONE
     Indication: BURKITT^S LEUKAEMIA
     Dosage: 3 CYCLES, R-HYPER-CVAD REGIMEN
     Route: 037
     Dates: start: 201806
  6. DOXORUBICIN [Suspect]
     Active Substance: DOXORUBICIN
     Indication: BURKITT^S LEUKAEMIA
     Dosage: 3 CYCLES, R-HYPER-CVAD REGIMEN
     Route: 037
     Dates: start: 201806
  7. DOXORUBICIN [Suspect]
     Active Substance: DOXORUBICIN
     Indication: CENTRAL NERVOUS SYSTEM LEUKAEMIA
  8. CYCLOPHOSPHAMIDE. [Suspect]
     Active Substance: CYCLOPHOSPHAMIDE
     Indication: CENTRAL NERVOUS SYSTEM LEUKAEMIA
     Dosage: 3 CYCLES, R-HYPER-CVAD REGIMEN
     Route: 037
     Dates: start: 201806
  9. LAMIVUDINE. [Concomitant]
     Active Substance: LAMIVUDINE
     Indication: ACQUIRED IMMUNODEFICIENCY SYNDROME
  10. VINCRISTINE [Suspect]
     Active Substance: VINCRISTINE
     Indication: BURKITT^S LEUKAEMIA
  11. METHOTREXATE SODIUM. [Suspect]
     Active Substance: METHOTREXATE SODIUM
     Indication: CENTRAL NERVOUS SYSTEM LEUKAEMIA
  12. CYTARABINE. [Suspect]
     Active Substance: CYTARABINE
     Indication: CENTRAL NERVOUS SYSTEM LEUKAEMIA
  13. ABACAVIR. [Concomitant]
     Active Substance: ABACAVIR
     Indication: HIV INFECTION
     Dosage: UNK
     Route: 065
  14. ABACAVIR. [Concomitant]
     Active Substance: ABACAVIR
     Indication: ANTIRETROVIRAL THERAPY
  15. LAMIVUDINE. [Concomitant]
     Active Substance: LAMIVUDINE
     Indication: ANTIRETROVIRAL THERAPY
  16. METHOTREXATE SODIUM. [Suspect]
     Active Substance: METHOTREXATE SODIUM
     Indication: BURKITT^S LEUKAEMIA
     Dosage: 3 CYCLES, R-HYPER-CVAD REGIMEN
     Route: 037
     Dates: start: 201806
  17. RITUXIMAB. [Suspect]
     Active Substance: RITUXIMAB
     Indication: BURKITT^S LEUKAEMIA
     Dosage: 3 CYCLES, R-HYPER-CVAD REGIMEN
     Route: 037
     Dates: start: 201806
  18. CYCLOPHOSPHAMIDE. [Suspect]
     Active Substance: CYCLOPHOSPHAMIDE
     Indication: BURKITT^S LEUKAEMIA
  19. DOLUTEGRAVIR [Concomitant]
     Active Substance: DOLUTEGRAVIR
     Indication: ANTIRETROVIRAL THERAPY
  20. LAMIVUDINE. [Concomitant]
     Active Substance: LAMIVUDINE
     Indication: HIV INFECTION
     Dosage: UNK
     Route: 065
  21. CYTARABINE. [Suspect]
     Active Substance: CYTARABINE
     Indication: BURKITT^S LEUKAEMIA
     Dosage: 3 CYCLES, R-HYPER-CVAD REGIMEN
     Route: 037
     Dates: start: 201806
  22. DOLUTEGRAVIR [Concomitant]
     Active Substance: DOLUTEGRAVIR
     Indication: ACQUIRED IMMUNODEFICIENCY SYNDROME
  23. DEXAMETHASONE. [Suspect]
     Active Substance: DEXAMETHASONE
     Indication: CENTRAL NERVOUS SYSTEM LEUKAEMIA

REACTIONS (9)
  - Product use in unapproved indication [Unknown]
  - Product use issue [Unknown]
  - Myelopathy [Recovering/Resolving]
  - Areflexia [Recovering/Resolving]
  - Spinal cord injury [Recovering/Resolving]
  - Urinary incontinence [Recovering/Resolving]
  - Anal incontinence [Recovering/Resolving]
  - Paraparesis [Recovering/Resolving]
  - Hypoaesthesia [Recovering/Resolving]

NARRATIVE: CASE EVENT DATE: 201812
